FAERS Safety Report 14976211 (Version 1)
Quarter: 2018Q2

REPORT INFORMATION
  Report Type: Spontaneous
  Country: US (occurrence: US)
  Receive Date: 20180605
  Receipt Date: 20180605
  Transmission Date: 20180711
  Serious: No
  Sender: FDA-Public Use
  Company Number: US-ROCHE-2052916

PATIENT
  Sex: Female

DRUGS (12)
  1. BOTOX [Concomitant]
     Active Substance: ONABOTULINUMTOXINA
  2. METOPROLOL SUCCINATE. [Concomitant]
     Active Substance: METOPROLOL SUCCINATE
  3. VITAMIN D [Concomitant]
     Active Substance: CHOLECALCIFEROL
  4. GRALISE [Concomitant]
     Active Substance: GABAPENTIN
  5. ZINC. [Concomitant]
     Active Substance: ZINC
  6. HYDROCORTISONE. [Concomitant]
     Active Substance: HYDROCORTISONE
  7. ACTEMRA [Suspect]
     Active Substance: TOCILIZUMAB
     Indication: RHEUMATOID ARTHRITIS
     Route: 042
  8. SULFASALAZINE. [Concomitant]
     Active Substance: SULFASALAZINE
  9. VITAMIN C [Concomitant]
     Active Substance: ASCORBIC ACID
  10. VITAMIN B12 [Concomitant]
     Active Substance: CYANOCOBALAMIN
  11. DEXILANT [Concomitant]
     Active Substance: DEXLANSOPRAZOLE
  12. CURCUMIN [Concomitant]
     Active Substance: CURCUMIN

REACTIONS (2)
  - Fatigue [Unknown]
  - Arthralgia [Unknown]
